FAERS Safety Report 4386198-2 (Version None)
Quarter: 2004Q2

REPORT INFORMATION
  Report Type: 
  Country: None (occurrence: None)
  Receive Date: 20040628
  Receipt Date: 20040628
  Transmission Date: 20050107
  Serious: Yes (Hospitalization)
  Sender: FDA-Public Use
  Company Number: None

PATIENT
  Age: 57 Year
  Sex: Male
  Weight: 63 kg

DRUGS (1)
  1. PHENYTOIN SODIUM [Suspect]
     Indication: LOSS OF CONSCIOUSNESS
     Dosage: 300 MG HS
     Dates: start: 20040330

REACTIONS (5)
  - ATAXIA [None]
  - DRUG TOXICITY [None]
  - DYSARTHRIA [None]
  - FALL [None]
  - NYSTAGMUS [None]
